FAERS Safety Report 7604598-1 (Version None)
Quarter: 2011Q3

REPORT INFORMATION
  Report Type: 
  Country: None (occurrence: None)
  Receive Date: 20110712
  Receipt Date: 20110707
  Transmission Date: 20111222
  Serious: Yes (Other)
  Sender: FDA-Public Use
  Company Number: US-CEPHALON-2011000984

PATIENT
  Sex: Female
  Weight: 113 kg

DRUGS (2)
  1. NUVIGIL [Suspect]
     Indication: NARCOLEPSY
     Route: 048
     Dates: start: 20110215, end: 20110217
  2. NUVIGIL [Suspect]
     Indication: HYPERSOMNIA

REACTIONS (4)
  - HEADACHE [None]
  - DRY MOUTH [None]
  - MOUTH ULCERATION [None]
  - INFLUENZA LIKE ILLNESS [None]
